FAERS Safety Report 25553506 (Version 2)
Quarter: 2025Q3

REPORT INFORMATION
  Report Type: Spontaneous
  Country: GB (occurrence: GB)
  Receive Date: 20250715
  Receipt Date: 20250813
  Transmission Date: 20251020
  Serious: Yes (Hospitalization)
  Sender: TEVA
  Company Number: GB-GLENMARK PHARMACEUTICALS-2025GMK101416

PATIENT
  Age: 85 Year
  Sex: Female

DRUGS (9)
  1. URSODIOL [Suspect]
     Active Substance: URSODIOL
     Indication: Primary biliary cholangitis
     Dosage: DAILY DOSAGE: 950MG
     Route: 065
     Dates: start: 202306, end: 202503
  2. URSODIOL [Suspect]
     Active Substance: URSODIOL
     Indication: Primary biliary cholangitis
     Dosage: DAILY DOSAGE: 950MG AT NIGHT
     Route: 065
     Dates: start: 202306, end: 202503
  3. QUININE [Concomitant]
     Active Substance: QUININE
     Indication: Muscle spasms
  4. FUROSEMIDE [Concomitant]
     Active Substance: FUROSEMIDE
     Indication: Fluid retention
     Route: 065
  5. LACTULOSE [Concomitant]
     Active Substance: LACTULOSE
     Indication: Constipation
  6. LISINOPRIL [Concomitant]
     Active Substance: LISINOPRIL
     Indication: Blood pressure abnormal
  7. CALCIUM CARBONATE\CHOLECALCIFEROL [Concomitant]
     Active Substance: CALCIUM CARBONATE\CHOLECALCIFEROL
     Indication: Mineral supplementation
     Dosage: DAILY DOSAGE: 2 DOSAGE FORM
  8. ASPIRIN [Concomitant]
     Active Substance: ASPIRIN
     Indication: Product used for unknown indication
  9. URSODIOL [Suspect]
     Active Substance: URSODIOL
     Indication: Primary biliary cholangitis
     Dosage: DAILY DOSAGE: 950MG (AT  NIGHT)
     Route: 065
     Dates: start: 202306, end: 202503

REACTIONS (13)
  - Abdominal pain upper [Not Recovered/Not Resolved]
  - Dizziness [Unknown]
  - Vomiting [Unknown]
  - Dysstasia [Unknown]
  - Eructation [Unknown]
  - Cold sweat [Unknown]
  - Feeling hot [Unknown]
  - Food intolerance [Unknown]
  - Decreased appetite [Not Recovered/Not Resolved]
  - Hyperhidrosis [Recovering/Resolving]
  - Nausea [Unknown]
  - Asthenia [Unknown]
  - Brain fog [Recovering/Resolving]

NARRATIVE: CASE EVENT DATE: 20231201
